FAERS Safety Report 7398763-9 (Version None)
Quarter: 2011Q2

REPORT INFORMATION
  Report Type: 
  Country: None (occurrence: None)
  Receive Date: 20110401
  Receipt Date: 20110401
  Transmission Date: 20111010
  Serious: No
  Sender: FDA-Public Use
  Company Number: None

PATIENT
  Age: 81 Year
  Sex: Male
  Weight: 80 kg

DRUGS (1)
  1. MYCOPHENOLATE MEFETIL [Suspect]
     Indication: PEMPHIGOID
     Dosage: 1000 MG BID PO
     Route: 048
     Dates: start: 20110128, end: 20110302

REACTIONS (1)
  - PANCYTOPENIA [None]
